FAERS Safety Report 8376522-8 (Version None)
Quarter: 2012Q1

REPORT INFORMATION
  Report Type: 
  Country: None (occurrence: None)
  Receive Date: 20120323
  Receipt Date: 20110801
  Transmission Date: 20120608
  Serious: Yes (Hospitalization)
  Sender: FDA-Public Use
  Company Number: 163-21880-11080307

PATIENT
  Age: 67 Year
  Sex: Male
  Weight: 116.1208 kg

DRUGS (5)
  1. REVLIMID [Suspect]
     Indication: MULTIPLE MYELOMA
     Dosage: 25;10 MG, 1 IN 1 D, PO
     Route: 048
     Dates: start: 20110201, end: 20110201
  2. REVLIMID [Suspect]
     Indication: MULTIPLE MYELOMA
     Dosage: 25;10 MG, 1 IN 1 D, PO
     Route: 048
     Dates: start: 20110201
  3. REVLIMID [Suspect]
     Indication: MULTIPLE MYELOMA
     Dosage: 25;10 MG, 1 IN 1 D, PO
     Route: 048
     Dates: start: 20110101
  4. ZOMETA [Concomitant]
  5. DECADRON [Concomitant]

REACTIONS (4)
  - ABDOMINAL DISCOMFORT [None]
  - PNEUMONIA [None]
  - WEIGHT DECREASED [None]
  - BALANCE DISORDER [None]
